FAERS Safety Report 11574230 (Version 4)
Quarter: 2016Q3

REPORT INFORMATION
  Report Type: Spontaneous
  Country: IN (occurrence: US)
  Receive Date: 20150930
  Receipt Date: 20160720
  Transmission Date: 20161109
  Serious: Yes (Life-Threatening, Hospitalization)
  Sender: FDA-Public Use
  Company Number: US-LUPIN PHARMACEUTICALS INC.-E2B_00004227

PATIENT
  Age: 63 Year
  Sex: Female
  Weight: 72.64 kg

DRUGS (1)
  1. LISINOPRIL TABLETS USP 20MG [Suspect]
     Active Substance: LISINOPRIL
     Indication: HYPERTENSION
     Route: 048
     Dates: start: 20131018, end: 20150822

REACTIONS (3)
  - Apparent death [Recovered/Resolved]
  - Speech disorder [Recovered/Resolved]
  - Angioedema [Recovered/Resolved]

NARRATIVE: CASE EVENT DATE: 20150821
